FAERS Safety Report 5659724-0 (Version None)
Quarter: 2008Q1

REPORT INFORMATION
  Report Type: 
  Country: None (occurrence: None)
  Receive Date: 20080311
  Receipt Date: 20071025
  Transmission Date: 20080703
  Serious: No
  Sender: FDA-Public Use
  Company Number: US-BAYER-200712146BCC

PATIENT
  Age: 53 Year
  Sex: Female
  Weight: 122 kg

DRUGS (20)
  1. ALEVE [Suspect]
     Indication: PAIN IN JAW
     Dosage: AS USED: 440/220 MG  UNIT DOSE: 220 MG
     Dates: start: 20070702
  2. GLUCOPHAGE [Concomitant]
     Dosage: UNIT DOSE: 1000 MG
  3. AMARYL [Concomitant]
     Dosage: TOTAL DAILY DOSE: 8 MG  UNIT DOSE: 4 MG
  4. ACTOS [Concomitant]
     Dosage: TOTAL DAILY DOSE: 45 MG  UNIT DOSE: 45 MG
  5. ALBUTEROL [Concomitant]
     Indication: ASTHMA
  6. ZYRTEC [Concomitant]
     Dosage: UNIT DOSE: 10 MG
  7. PROTONIX [Concomitant]
     Dosage: TOTAL DAILY DOSE: 80 MG  UNIT DOSE: 40 MG
  8. NORVASC [Concomitant]
     Dosage: TOTAL DAILY DOSE: 5 MG  UNIT DOSE: 5 MG
  9. FOSINOPRIL SODIUM [Concomitant]
     Dosage: TOTAL DAILY DOSE: 60 MG  UNIT DOSE: 20 MG
  10. STOOL SOFTENER [Concomitant]
  11. IRON [Concomitant]
  12. MULTI-VITAMIN [Concomitant]
  13. B6 [Concomitant]
  14. HYDROCHLOROTHIAZIDE [Concomitant]
     Dosage: TOTAL DAILY DOSE: 25 MG  UNIT DOSE: 25 MG
  15. NASACORT [Concomitant]
     Route: 045
  16. ASPIRIN [Concomitant]
  17. ASMANEX TWISTHALER [Concomitant]
     Indication: ASTHMA
  18. THEOPHYLLINE-SR [Concomitant]
     Dosage: UNIT DOSE: 300 MG
  19. CYMBALTA [Concomitant]
     Dosage: TOTAL DAILY DOSE: 60 MG  UNIT DOSE: 60 MG
  20. TRAZODONE HCL [Concomitant]

REACTIONS (3)
  - MICTURITION DISORDER [None]
  - OEDEMA PERIPHERAL [None]
  - SWELLING FACE [None]
